FAERS Safety Report 5592895-3 (Version None)
Quarter: 2008Q1

REPORT INFORMATION
  Report Type: 
  Country: None (occurrence: None)
  Receive Date: 20080116
  Receipt Date: 20080104
  Transmission Date: 20080703
  Serious: Yes (Other)
  Sender: FDA-Public Use
  Company Number: US-AMGEN-US256444

PATIENT
  Sex: Female
  Weight: 68.18 kg

DRUGS (5)
  1. ENBREL [Suspect]
     Indication: RHEUMATOID ARTHRITIS
     Route: 058
     Dates: start: 20030731
  2. NASACORT [Concomitant]
     Route: 065
     Dates: start: 20030731
  3. PREMARIN [Concomitant]
     Route: 065
     Dates: start: 20030731
  4. FLONASE [Concomitant]
     Route: 065
     Dates: start: 20030731
  5. ENBREL - COMPARATOR (PLAQUENIL) [Concomitant]
     Route: 065
     Dates: start: 20030731

REACTIONS (1)
  - SIDEROPENIC DYSPHAGIA [None]
